FAERS Safety Report 7246986-1 (Version None)
Quarter: 2011Q1

REPORT INFORMATION
  Report Type: 
  Country: None (occurrence: None)
  Receive Date: 20110127
  Receipt Date: 20110118
  Transmission Date: 20110831
  Serious: Yes (Hospitalization)
  Sender: FDA-Public Use
  Company Number: US-ASTRAZENECA-2011SE03388

PATIENT
  Age: 27385 Day
  Sex: Female

DRUGS (20)
  1. ROSUVASTATIN [Suspect]
     Route: 048
  2. STATIN [Concomitant]
  3. PREDNISONE [Concomitant]
     Dates: start: 20101214
  4. CARTIA XT [Concomitant]
     Dates: start: 20060907
  5. BISOPROLOL FUMARATE [Concomitant]
     Dates: start: 20101230
  6. LACTULOSE [Concomitant]
     Dates: start: 20101224
  7. ENOXAPARIN SODIUM [Suspect]
     Indication: THROMBOSIS PROPHYLAXIS
     Route: 058
     Dates: start: 20101209, end: 20101215
  8. ETODOLAC [Suspect]
     Route: 065
  9. PLACEBO [Suspect]
     Indication: THROMBOSIS PROPHYLAXIS
     Route: 065
     Dates: start: 20101209, end: 20101201
  10. FOSALAN [Concomitant]
     Dates: start: 20050726
  11. AMLODIPINE [Concomitant]
     Dates: start: 20101215
  12. AMLODIPINE [Concomitant]
     Dates: start: 20101224, end: 20101225
  13. FLUTICASONE PROPIONATE [Concomitant]
     Dates: start: 20101223, end: 20101229
  14. BISOPROLOL FUMARATE [Concomitant]
     Dates: start: 20101224
  15. SINGULAIR [Concomitant]
     Dates: start: 20101215
  16. PRILOSEC [Concomitant]
     Dates: start: 20101210
  17. FUSID [Concomitant]
     Dates: start: 20100829, end: 20101224
  18. AEROVENT [Concomitant]
     Dates: start: 20101223, end: 20101229
  19. DERALIN [Concomitant]
     Dates: start: 20101210
  20. APIXABAN [Suspect]
     Indication: THROMBOSIS PROPHYLAXIS
     Route: 048
     Dates: start: 20101209, end: 20101223

REACTIONS (2)
  - CELLULITIS [None]
  - LIVER FUNCTION TEST ABNORMAL [None]
